FAERS Safety Report 6848106-1 (Version None)
Quarter: 2010Q3

REPORT INFORMATION
  Report Type: 
  Country: None (occurrence: None)
  Receive Date: 20100716
  Receipt Date: 20100708
  Transmission Date: 20110219
  Serious: Yes (Hospitalization)
  Sender: FDA-Public Use
  Company Number: A0869237A

PATIENT
  Age: 49 Year
  Sex: Male

DRUGS (2)
  1. LAMICTAL [Suspect]
     Indication: EPILEPSY
     Dosage: 200MG PER DAY
     Route: 048
  2. LEVETIRACETAM [Concomitant]

REACTIONS (4)
  - GRAND MAL CONVULSION [None]
  - MUSCLE SPASMS [None]
  - MUSCLE TWITCHING [None]
  - THROMBOSIS [None]
